FAERS Safety Report 7356822-0 (Version None)
Quarter: 2011Q1

REPORT INFORMATION
  Report Type: 
  Country: None (occurrence: None)
  Receive Date: 20110317
  Receipt Date: 20110314
  Transmission Date: 20110831
  Serious: Yes (Hospitalization)
  Sender: FDA-Public Use
  Company Number: DE-ELI_LILLY_AND_COMPANY-DE201103004089

PATIENT
  Sex: Male
  Weight: 60.2 kg

DRUGS (13)
  1. PREDNISOLONE [Concomitant]
     Indication: PAIN
     Dates: start: 20110208
  2. GEMCITABINE HYDROCHLORIDE [Suspect]
     Indication: NON-SMALL CELL LUNG CANCER
     Dosage: 2112 MG, UNK
     Dates: start: 20110225
  3. MOVIPREP [Concomitant]
     Indication: CONSTIPATION
     Dates: start: 20110218
  4. PANTOZOL [Concomitant]
     Indication: SKIN ULCER
     Dates: start: 20110208
  5. NOVALGIN [Concomitant]
     Dates: start: 20110208
  6. SPIRIVA [Concomitant]
     Indication: CHRONIC OBSTRUCTIVE PULMONARY DISEASE
     Dates: start: 19900101
  7. BERODUAL [Concomitant]
     Indication: CHRONIC OBSTRUCTIVE PULMONARY DISEASE
     Dates: start: 19900101
  8. OXYGESIC [Concomitant]
     Indication: PAIN
     Dates: start: 20110208
  9. LYRICA [Concomitant]
     Indication: PAIN
     Dates: start: 20110208
  10. SAROTEN [Concomitant]
     Indication: RESTLESSNESS
     Dates: start: 20110222
  11. CISPLATIN [Suspect]
     Indication: NON-SMALL CELL LUNG CANCER
     Dosage: 126 MG, UNK
     Dates: start: 20110225
  12. TARGIN [Concomitant]
     Indication: PAIN
     Dates: start: 20110208
  13. FOLSAN [Concomitant]
     Indication: CHEMOTHERAPY
     Dates: start: 20110208

REACTIONS (2)
  - DEHYDRATION [None]
  - STOMATITIS [None]
